FAERS Safety Report 9511272 (Version 1)
Quarter: 2013Q3

REPORT INFORMATION
  Report Type: Spontaneous
  Country: US (occurrence: None)
  Receive Date: 20130909
  Receipt Date: 20130909
  Transmission Date: 20140515
  Serious: No
  Sender: FDA-Public Use
  Company Number: None

PATIENT
  Age: 56 Year
  Sex: Female
  Weight: 53.07 kg

DRUGS (11)
  1. CIPRO [Suspect]
     Indication: URINARY TRACT INFECTION
     Dates: start: 20130301, end: 20130308
  2. PROGESTERONE [Concomitant]
  3. TESTOSTERONE [Concomitant]
  4. NOVARTIS VIVELLE (ESTROGEN) [Concomitant]
  5. VITAMIN D3 [Concomitant]
  6. FISH OIL [Concomitant]
  7. CALCIUM [Concomitant]
  8. CALCIUM [Concomitant]
  9. CHONDROITIN SULFATE [Concomitant]
  10. PROTEOGLYCAN [Concomitant]
  11. VITAMIN B [Concomitant]

REACTIONS (2)
  - Neuropathy peripheral [None]
  - Alcohol use [None]
